FAERS Safety Report 6423647-X (Version None)
Quarter: 2009Q4

REPORT INFORMATION
  Report Type: 
  Country: None (occurrence: None)
  Receive Date: 20091028
  Receipt Date: 20091019
  Transmission Date: 20100525
  Serious: Yes (Hospitalization)
  Sender: FDA-Public Use
  Company Number: 412597

PATIENT
  Sex: Male

DRUGS (10)
  1. VINCRISTINE [Suspect]
     Indication: ACUTE LYMPHOCYTIC LEUKAEMIA
     Dosage: 2 MG, INTRAVENOUS
     Route: 042
     Dates: start: 20081114, end: 20081205
  2. METHOTREXATE [Suspect]
     Indication: ACUTE LYMPHOCYTIC LEUKAEMIA
     Dosage: 15 MG, INTRAVENOUS
     Route: 042
     Dates: start: 20081107, end: 20081120
  3. CYTARABINE [Suspect]
     Indication: ACUTE LYMPHOCYTIC LEUKAEMIA
     Dosage: 30 MG, INTRAVENOUS
     Route: 042
     Dates: start: 20081114, end: 20081120
  4. DAUNORUBICIN HCL [Suspect]
     Indication: ACUTE LYMPHOCYTIC LEUKAEMIA
     Dosage: 70 MG, INTRAVENOUS
     Route: 042
     Dates: start: 20081114, end: 20081128
  5. ELSPAR [Suspect]
     Dosage: INTRAVENOUS
     Route: 042
     Dates: start: 20081111, end: 20081203
  6. CERUBIDINE [Suspect]
     Indication: ACUTE LYMPHOCYTIC LEUKAEMIA
     Dosage: 20 MG, INTRAVENOUS
     Route: 042
     Dates: start: 20081111, end: 20081125
  7. (KIDROLASE) [Suspect]
     Indication: ACUTE LYMPHOCYTIC LEUKAEMIA
     Dosage: 10000 UNIT(S), INTRAVENOUS
     Route: 042
     Dates: start: 20081111, end: 20081203
  8. BRICANYL [Concomitant]
  9. (CORTANCYL) [Concomitant]
  10. PREDNISOLONE [Concomitant]

REACTIONS (4)
  - ANAEMIA [None]
  - APLASIA [None]
  - NEUTROPENIA [None]
  - THROMBOCYTOPENIA [None]
